FAERS Safety Report 5854546-X (Version None)
Quarter: 2008Q3

REPORT INFORMATION
  Report Type: 
  Country: None (occurrence: None)
  Receive Date: 20080822
  Receipt Date: 20071003
  Transmission Date: 20090109
  Serious: No
  Sender: FDA-Public Use
  Company Number: US-ABBOTT-07P-163-0419311-00

PATIENT
  Sex: Female
  Weight: 81.72 kg

DRUGS (3)
  1. SYNTHROID [Suspect]
     Indication: HYPOTHYROIDISM
     Route: 048
     Dates: start: 20070301, end: 20070401
  2. NECON 35 [Concomitant]
     Indication: ORAL CONTRACEPTION
     Route: 048
  3. CIRRUS [Concomitant]
     Indication: HYPERSENSITIVITY
     Route: 048

REACTIONS (2)
  - ALOPECIA [None]
  - URTICARIA [None]
